FAERS Safety Report 24201855 (Version 1)
Quarter: 2024Q3

REPORT INFORMATION
  Report Type: Spontaneous
  Country: FR (occurrence: FR)
  Receive Date: 20240812
  Receipt Date: 20240812
  Transmission Date: 20241017
  Serious: Yes (Hospitalization, Other)
  Sender: MERCK
  Company Number: FR-009507513-2407FRA013263

PATIENT
  Age: 84 Year
  Sex: Female

DRUGS (13)
  1. KEYTRUDA [Suspect]
     Active Substance: PEMBROLIZUMAB
     Indication: Triple negative breast cancer
     Dosage: 200 MILLIGRAM, Q3W, NEOADJUVANT PHASE
     Route: 042
     Dates: start: 20230926, end: 20230926
  2. KEYTRUDA [Suspect]
     Active Substance: PEMBROLIZUMAB
     Dosage: 200 MILLIGRAM, Q3W, NEOADJUVANT PHASE
     Route: 042
     Dates: start: 20231031, end: 20231031
  3. KEYTRUDA [Suspect]
     Active Substance: PEMBROLIZUMAB
     Dosage: 200 MILLIGRAM, Q3W, NEOADJUVANT PHASE
     Route: 042
     Dates: start: 20231208, end: 20231208
  4. KEYTRUDA [Suspect]
     Active Substance: PEMBROLIZUMAB
     Dosage: 200 MILLIGRAM, Q3W, NEOADJUVANT PHASE
     Route: 042
     Dates: start: 20240116, end: 20240116
  5. KEYTRUDA [Suspect]
     Active Substance: PEMBROLIZUMAB
     Dosage: 200 MILLIGRAM, Q3W, NEOADJUVANT PHASE
     Route: 042
     Dates: start: 20240206, end: 20240206
  6. KEYTRUDA [Suspect]
     Active Substance: PEMBROLIZUMAB
     Dosage: 200 MILLIGRAM, Q3W, NEOADJUVANT PHASE
     Route: 042
     Dates: start: 20240227, end: 20240227
  7. KEYTRUDA [Suspect]
     Active Substance: PEMBROLIZUMAB
     Dosage: 400 MILLIGRAM, EVERY 6 WEEKS, ADJUVANT PHASE
     Route: 042
     Dates: start: 2024, end: 20240416
  8. CARBOPLATIN [Suspect]
     Active Substance: CARBOPLATIN
     Indication: Triple negative breast cancer
     Dosage: WEEKLY (QW)
     Dates: start: 2023, end: 2023
  9. CARBOPLATIN [Suspect]
     Active Substance: CARBOPLATIN
     Dosage: WEEKLY (QW), AT 50% DOSE
     Dates: start: 2023, end: 2023
  10. TAXOL [Suspect]
     Active Substance: PACLITAXEL
     Indication: Triple negative breast cancer
     Dosage: WEEKLY (QW)
     Dates: start: 2023, end: 2023
  11. TAXOL [Suspect]
     Active Substance: PACLITAXEL
     Dosage: WEEKLY (QW), AT 50% DOSE
     Dates: start: 2023, end: 2023
  12. EPIRUBICIN [Suspect]
     Active Substance: EPIRUBICIN
     Indication: Triple negative breast cancer
     Dosage: 21DAYS (Q3W)
     Dates: start: 2024, end: 2024
  13. CYCLOPHOSPHAMIDE [Suspect]
     Active Substance: CYCLOPHOSPHAMIDE
     Indication: Triple negative breast cancer
     Dosage: 21DAYS (Q3W)
     Dates: start: 2024, end: 2024

REACTIONS (11)
  - Malignant neoplasm progression [Unknown]
  - Hyperthermia [Recovered/Resolved]
  - Escherichia urinary tract infection [Recovered/Resolved]
  - Pyelonephritis [Recovered/Resolved]
  - General physical health deterioration [Recovered/Resolved]
  - Weight decreased [Recovered/Resolved]
  - Dysaesthesia [Recovered/Resolved]
  - Therapy non-responder [Unknown]
  - Inappropriate schedule of product administration [Unknown]
  - Inappropriate schedule of product administration [Unknown]
  - Inappropriate schedule of product administration [Unknown]

NARRATIVE: CASE EVENT DATE: 20231001
